FAERS Safety Report 12294657 (Version 1)
Quarter: 2016Q2

REPORT INFORMATION
  Report Type: Spontaneous
  Country: US (occurrence: None)
  Receive Date: 20160421
  Receipt Date: 20160421
  Transmission Date: 20160815
  Serious: Yes (Disabling, Other)
  Sender: FDA-Public Use
  Company Number: None

PATIENT
  Age: 47 Year
  Sex: Female
  Weight: 58.97 kg

DRUGS (3)
  1. VITD [Concomitant]
  2. DULOXETINE. [Suspect]
     Active Substance: DULOXETINE
     Indication: DEPRESSION
     Dates: start: 20080201
  3. NALTREXONE [Concomitant]
     Active Substance: NALTREXONE

REACTIONS (2)
  - Loss of consciousness [None]
  - Alcoholism [None]

NARRATIVE: CASE EVENT DATE: 20160401
